FAERS Safety Report 4295731-0 (Version None)
Quarter: 2004Q1

REPORT INFORMATION
  Report Type: 
  Country: None (occurrence: None)
  Receive Date: 20040212
  Receipt Date: 20040209
  Transmission Date: 20041129
  Serious: Yes (Death)
  Sender: FDA-Public Use
  Company Number: KII-1999-0001872

PATIENT
  Age: 22 Year
  Sex: Male

DRUGS (1)
  1. OXYFAST CONCENTRATE 20 MG/ML(OXYCODONE HYDROCHLORIDE) ORAL SOLUTION [Suspect]
     Indication: DRUG USE FOR UNKNOWN INDICATION
     Dosage: 1.5 ML, Q3H, PRN

REACTIONS (1)
  - SEPSIS [None]
